FAERS Safety Report 8285723-9 (Version None)
Quarter: 2012Q2

REPORT INFORMATION
  Report Type: 
  Country: None (occurrence: None)
  Receive Date: 20120413
  Receipt Date: 20120403
  Transmission Date: 20120825
  Serious: Yes (Other)
  Sender: FDA-Public Use
  Company Number: US-RB-030159-11

PATIENT
  Sex: Male
  Weight: 3.12 kg

DRUGS (4)
  1. SUBOXONE [Suspect]
     Indication: DRUG DEPENDENCE
     Dosage: 4-8 MG INTERMITTENTLY DAILY
     Route: 064
     Dates: start: 20090801, end: 20100529
  2. ZOLOFT [Suspect]
     Indication: DEPRESSION
     Dosage: DOSING DETAILS NOT PROVIDED
     Route: 064
     Dates: start: 20091101, end: 20091101
  3. NICOTINE [Suspect]
     Indication: NICOTINE DEPENDENCE
     Dosage: DOSING DETAILS NOT PROVIDED
     Route: 064
     Dates: start: 20090801, end: 20100529
  4. OTHER OPIATES [Suspect]
     Indication: DRUG DEPENDENCE
     Dosage: DOSING DETAILS NOT PROVIDED
     Route: 064
     Dates: end: 20100529

REACTIONS (4)
  - WOLFF-PARKINSON-WHITE SYNDROME [None]
  - SPEECH DISORDER DEVELOPMENTAL [None]
  - FOETAL EXPOSURE DURING PREGNANCY [None]
  - TACHYCARDIA [None]
